FAERS Safety Report 8990431 (Version 1)
Quarter: 2012Q4

REPORT INFORMATION
  Report Type: 
  Country: US (occurrence: US)
  Receive Date: 20121228
  Receipt Date: 20121228
  Transmission Date: 20130627
  Serious: No
  Sender: FDA-Public Use
  Company Number: US-ASTRAZENECA-2012SE94041

PATIENT
  Age: 77 Year
  Sex: Female

DRUGS (2)
  1. SYMBICORT [Suspect]
     Dosage: 160+4.5 MCG, UNKNOWN
     Route: 055
     Dates: start: 2012, end: 2012
  2. SYMBICORT [Suspect]
     Dosage: 160+4.5 MCG, UNKNOWN
     Route: 055

REACTIONS (2)
  - Sputum increased [Unknown]
  - Cough [Unknown]
